FAERS Safety Report 8179071-5 (Version None)
Quarter: 2012Q1

REPORT INFORMATION
  Report Type: 
  Country: None (occurrence: None)
  Receive Date: 20120302
  Receipt Date: 20120111
  Transmission Date: 20120608
  Serious: Yes (Other)
  Sender: FDA-Public Use
  Company Number: US-ROCHE-791230

PATIENT
  Sex: Female
  Weight: 59.02 kg

DRUGS (1)
  1. ACCUTANE [Suspect]
     Indication: ACNE
     Route: 048
     Dates: start: 19980520, end: 19990101

REACTIONS (6)
  - PERIRECTAL ABSCESS [None]
  - HAEMORRHOIDS [None]
  - COLONIC POLYP [None]
  - CROHN'S DISEASE [None]
  - ANXIETY [None]
  - IRON DEFICIENCY ANAEMIA [None]
